FAERS Safety Report 19939706 (Version 2)
Quarter: 2022Q2

REPORT INFORMATION
  Report Type: Report from Study
  Country: US (occurrence: US)
  Receive Date: 20211011
  Receipt Date: 20220418
  Transmission Date: 20220721
  Serious: Yes (Other)
  Sender: FDA-Public Use
  Company Number: US-SA-SAC20211007000342

PATIENT
  Age: 57 Year
  Sex: Female

DRUGS (2)
  1. DUPILUMAB [Suspect]
     Active Substance: DUPILUMAB
     Indication: Dermatitis atopic
     Dosage: 600 MG, 1X
     Route: 058
     Dates: start: 202108, end: 202108
  2. DUPILUMAB [Suspect]
     Active Substance: DUPILUMAB
     Dosage: 300 MG, QOW
     Route: 058

REACTIONS (4)
  - Cataract [Not Recovered/Not Resolved]
  - Visual impairment [Not Recovered/Not Resolved]
  - Eye infection [Unknown]
  - Intraocular pressure increased [Not Recovered/Not Resolved]
